FAERS Safety Report 8766877 (Version 4)
Quarter: 2013Q1

REPORT INFORMATION
  Report Type: Report from Study
  Country: CH (occurrence: CH)
  Receive Date: 20120904
  Receipt Date: 20130208
  Transmission Date: 20140127
  Serious: Yes (Death, Life-Threatening, Other)
  Sender: FDA-Public Use
  Company Number: CH-GENZYME-CLOF-1002284

PATIENT
  Age: 62 Year
  Sex: Female
  Weight: 92 kg

DRUGS (3)
  1. EVOLTRA [Suspect]
     Indication: ACUTE MYELOID LEUKAEMIA
     Dosage: 19.37 MG, QD
     Route: 042
     Dates: start: 20120818, end: 20120822
  2. IDARUBICIN [Suspect]
     Indication: ACUTE MYELOID LEUKAEMIA
     Dosage: 23.24 MG, UNK
     Route: 042
     Dates: start: 20120818
  3. CYTARABINE [Suspect]
     Indication: ACUTE MYELOID LEUKAEMIA
     Dosage: 387.3 MG, UNK
     Route: 042
     Dates: start: 20120818

REACTIONS (3)
  - Acute respiratory distress syndrome [Fatal]
  - Multi-organ failure [Fatal]
  - Renal failure [Unknown]
